FAERS Safety Report 13124901 (Version 1)
Quarter: 2017Q1

REPORT INFORMATION
  Report Type: Spontaneous
  Country: US (occurrence: US)
  Receive Date: 20170118
  Receipt Date: 20170118
  Transmission Date: 20170428
  Serious: No
  Sender: FDA-Public Use
  Company Number: US-BAYER-2017-009728

PATIENT
  Age: 83 Year
  Sex: Female
  Weight: 56 kg

DRUGS (6)
  1. MIRALAX [Suspect]
     Active Substance: POLYETHYLENE GLYCOL 3350
     Indication: CONSTIPATION PROPHYLAXIS
     Dosage: 0.5 DF, OM
     Route: 048
     Dates: start: 20161201
  2. PRILOSEC [Concomitant]
     Active Substance: OMEPRAZOLE MAGNESIUM
  3. FELODIPINE. [Concomitant]
     Active Substance: FELODIPINE
     Dosage: UNK, OCCASIONALLY
  4. HYDROCHLOROTHIAZIDE. [Concomitant]
     Active Substance: HYDROCHLOROTHIAZIDE
  5. TENORMIN [Concomitant]
     Active Substance: ATENOLOL
  6. SYNTHROID [Concomitant]
     Active Substance: LEVOTHYROXINE SODIUM

REACTIONS (6)
  - Retching [Not Recovered/Not Resolved]
  - Cough [Recovered/Resolved]
  - Dry throat [Not Recovered/Not Resolved]
  - Cough [Not Recovered/Not Resolved]
  - Drug hypersensitivity [Unknown]
  - Product use issue [Unknown]

NARRATIVE: CASE EVENT DATE: 20161201
